FAERS Safety Report 9454344 (Version 1)
Quarter: 2013Q3

REPORT INFORMATION
  Report Type: Spontaneous
  Country: US (occurrence: None)
  Receive Date: 20130809
  Receipt Date: 20130809
  Transmission Date: 20140515
  Serious: Yes (Other)
  Sender: FDA-Public Use
  Company Number: None

PATIENT
  Sex: Female
  Weight: 79.83 kg

DRUGS (1)
  1. LEVOXYL [Suspect]
     Indication: HYPOTHYROIDISM
     Dosage: 125 MCG 1X DAY 2X WEEKENDS?NEED BRAND NAME SYNTHROID
     Dates: start: 1980

REACTIONS (4)
  - Hypothyroidism [None]
  - Drug ineffective [None]
  - Product substitution issue [None]
  - Condition aggravated [None]
